FAERS Safety Report 19843071 (Version 1)
Quarter: 2021Q3

REPORT INFORMATION
  Report Type: Spontaneous
  Country: DE (occurrence: DE)
  Receive Date: 20210916
  Receipt Date: 20210916
  Transmission Date: 20211014
  Serious: Yes (Hospitalization, Other)
  Sender: FDA-Public Use
  Company Number: DE-PFIZER INC-202101143183

PATIENT
  Age: 62 Year
  Sex: Male
  Weight: 80 kg

DRUGS (7)
  1. CALCIUMFOLINAT [Concomitant]
     Active Substance: LEUCOVORIN CALCIUM
     Dosage: ACCORDING TO SCHEME
  2. PF?06439535 [Suspect]
     Active Substance: BEVACIZUMAB-BVZR
  3. OXALIPLATIN. [Suspect]
     Active Substance: OXALIPLATIN
     Dosage: ACCORDING TO SCHEME
  4. ALLOPURINOL. [Concomitant]
     Active Substance: ALLOPURINOL
     Dosage: 100 MG, 1?0?0?0, TABLET
     Route: 048
  5. SPIRONOLACTON [Concomitant]
     Active Substance: SPIRONOLACTONE
     Dosage: 50 MG, 1?0?0?0, TABLET
     Route: 048
  6. FLUOROURACIL. [Suspect]
     Active Substance: FLUOROURACIL
     Dosage: ACCORDING TO SCHEME
  7. TORASEMID [Concomitant]
     Active Substance: TORSEMIDE
     Dosage: 5 MG, 1?0?0?0, TABLET
     Route: 048

REACTIONS (6)
  - Pneumonia [Unknown]
  - Cytopenia [Unknown]
  - Pyrexia [Unknown]
  - Dyspnoea [Unknown]
  - Chills [Unknown]
  - Sepsis [Unknown]
